FAERS Safety Report 17010703 (Version 1)
Quarter: 2019Q4

REPORT INFORMATION
  Report Type: Spontaneous
  Country: US (occurrence: US)
  Receive Date: 20191107
  Receipt Date: 20191107
  Transmission Date: 20200122
  Serious: Yes (Life-Threatening, Hospitalization)
  Sender: FDA-Public Use
  Company Number: None

PATIENT
  Age: 38 Year
  Sex: Male
  Weight: 119.7 kg

DRUGS (1)
  1. CATHFLO ACTIVASE [Suspect]
     Active Substance: ALTEPLASE
     Indication: CATHETER MANAGEMENT
     Dosage: ?          OTHER ROUTE:IV LOCK/CATHETER?
     Dates: start: 20191106, end: 20191106

REACTIONS (10)
  - Therapeutic product effect delayed [None]
  - Vomiting [None]
  - Dizziness [None]
  - Hyperhidrosis [None]
  - Blood glucose increased [None]
  - Apheresis [None]
  - Dyspnoea [None]
  - Hypotension [None]
  - Drug hypersensitivity [None]
  - Pneumonia [None]

NARRATIVE: CASE EVENT DATE: 20191106
